FAERS Safety Report 12673635 (Version 2)
Quarter: 2016Q3

REPORT INFORMATION
  Report Type: Spontaneous
  Country: US (occurrence: US)
  Receive Date: 20160822
  Receipt Date: 20160829
  Transmission Date: 20161109
  Serious: No
  Sender: FDA-Public Use
  Company Number: US-PFIZER INC-2016368712

PATIENT
  Age: 67 Year
  Sex: Male
  Weight: 90.7 kg

DRUGS (8)
  1. RAPAMUNE [Suspect]
     Active Substance: SIROLIMUS
     Dosage: 1 MG, 1X/DAY
     Dates: start: 201606
  2. CALCITRIOL. [Concomitant]
     Active Substance: CALCITRIOL
     Indication: BONE DENSITY ABNORMAL
     Dosage: 0.25 UG, UNK
     Dates: start: 201606
  3. SIROLIMUS. [Suspect]
     Active Substance: SIROLIMUS
     Dosage: 1 MG, 1X/DAY
     Dates: start: 201606
  4. RAPAMUNE [Suspect]
     Active Substance: SIROLIMUS
     Indication: LIVER TRANSPLANT
     Dosage: 0.5 MG, 1X/DAY
     Dates: start: 201606
  5. CINNAMON. [Concomitant]
     Active Substance: CINNAMON
     Indication: PHYTOTHERAPY
     Dosage: 1000 MG, UNK
     Dates: start: 201602
  6. SIROLIMUS. [Suspect]
     Active Substance: SIROLIMUS
     Indication: LIVER TRANSPLANT
     Dosage: 0.5 MG, 1X/DAY
     Dates: start: 201606
  7. CALCIUM [Concomitant]
     Active Substance: CALCIUM
     Dosage: UNK
     Dates: start: 201307
  8. ATORVASTATIN [Concomitant]
     Active Substance: ATORVASTATIN
     Indication: BLOOD CHOLESTEROL ABNORMAL
     Dosage: 20 MG, 1X/DAY
     Dates: start: 201606

REACTIONS (4)
  - Acne [Not Recovered/Not Resolved]
  - Body height decreased [Unknown]
  - Weight fluctuation [Unknown]
  - Product use issue [Not Recovered/Not Resolved]

NARRATIVE: CASE EVENT DATE: 201606
